FAERS Safety Report 4498426-3 (Version None)
Quarter: 2004Q4

REPORT INFORMATION
  Report Type: 
  Country: None (occurrence: None)
  Receive Date: 20041105
  Receipt Date: 20041020
  Transmission Date: 20050328
  Serious: Yes (Other)
  Sender: FDA-Public Use
  Company Number: T04-GER-07157-01

PATIENT
  Age: 74 Year
  Sex: Female

DRUGS (10)
  1. CITALOPRAM HYDROBROMIDE [Suspect]
     Indication: DEPRESSION
     Dosage: 20 MG QD PO
     Route: 048
     Dates: start: 20030901
  2. AMIODARONE HCL [Suspect]
     Indication: ATRIAL FIBRILLATION
     Dosage: 200 MG QD PO
     Route: 048
     Dates: start: 20040720, end: 20040727
  3. DIGOXIN [Suspect]
     Indication: ATRIAL FIBRILLATION
     Dosage: 0.07 MG QD PO
     Route: 048
     Dates: start: 20020101, end: 20040727
  4. NORVASC [Suspect]
     Indication: HYPERTENSION
     Dosage: 5 MG QD PO
     Route: 048
  5. CELEBREX [Concomitant]
  6. CLOPIDOGREL BISULFATE [Concomitant]
  7. KATADOLON (FLUPIRTINE MALEATE) [Concomitant]
  8. LORZAAR (LOSARTAN POTASSIUM) [Concomitant]
  9. RANITIDINE HCL [Concomitant]
  10. VALORON N [Concomitant]

REACTIONS (8)
  - ATRIAL FIBRILLATION [None]
  - BRADYCARDIA [None]
  - CARDIAC ARREST [None]
  - CORONARY ARTERY STENOSIS [None]
  - DRUG INTERACTION [None]
  - DYSPNOEA AT REST [None]
  - DYSPNOEA EXERTIONAL [None]
  - SINOATRIAL BLOCK [None]
